FAERS Safety Report 7810044-5 (Version None)
Quarter: 2011Q4

REPORT INFORMATION
  Report Type: 
  Country: None (occurrence: None)
  Receive Date: 20111012
  Receipt Date: 20110817
  Transmission Date: 20120403
  Serious: No
  Sender: FDA-Public Use
  Company Number: US-GLAXOSMITHKLINE-A0941369A

PATIENT
  Age: 60 Year
  Sex: Male

DRUGS (3)
  1. JALYN [Suspect]
     Indication: BENIGN PROSTATIC HYPERPLASIA
     Dosage: 1CAP PER DAY
     Route: 048
     Dates: start: 20110515
  2. RITALIN [Concomitant]
  3. AMITRIPTYLINE HCL [Concomitant]

REACTIONS (1)
  - LIBIDO DECREASED [None]
